FAERS Safety Report 7422813-4 (Version None)
Quarter: 2011Q2

REPORT INFORMATION
  Report Type: 
  Country: None (occurrence: None)
  Receive Date: 20110419
  Receipt Date: 20091220
  Transmission Date: 20111010
  Serious: Yes (Hospitalization, Other)
  Sender: FDA-Public Use
  Company Number: US-BAYER-200942975NA

PATIENT
  Age: 73 Year
  Sex: Female
  Weight: 65.5 kg

DRUGS (10)
  1. TRASYLOL [Suspect]
     Dosage: 200 CC PUMP PRIME
     Dates: start: 20020628
  2. MILRINONE [Concomitant]
     Dosage: UNK
     Route: 042
     Dates: start: 20020628
  3. PROTAMINE SULFATE [Concomitant]
     Dosage: UNK
     Route: 042
     Dates: start: 20020628
  4. PHENYLEPHRINE HCL [Concomitant]
  5. TRASYLOL [Suspect]
     Dosage: 50CC/HR INFUSION
     Dates: start: 20020628, end: 20020628
  6. LASIX [Concomitant]
     Indication: FLUID RETENTION
     Dosage: 60 MG, QAM
     Dates: start: 20020501
  7. MANNITOL [Concomitant]
     Dosage: UNK
     Route: 042
     Dates: start: 20020628
  8. TRASYLOL [Suspect]
     Indication: MITRAL VALVE REPLACEMENT
     Dosage: 3 CC TEST DOSE
     Route: 042
     Dates: start: 20020628
  9. LASIX [Concomitant]
     Dosage: 40 MG QHS
     Dates: start: 20020501
  10. ALBUMIN (HUMAN) [Concomitant]
     Dosage: UNK
     Route: 042
     Dates: start: 20020628

REACTIONS (8)
  - RENAL FAILURE [None]
  - ANAEMIA [None]
  - INJURY [None]
  - BLOOD CREATININE INCREASED [None]
  - PAIN [None]
  - UNEVALUABLE EVENT [None]
  - RENAL FAILURE ACUTE [None]
  - RENAL FAILURE CHRONIC [None]
